FAERS Safety Report 19227580 (Version 1)
Quarter: 2021Q2

REPORT INFORMATION
  Report Type: Spontaneous
  Country: US (occurrence: US)
  Receive Date: 20210506
  Receipt Date: 20210506
  Transmission Date: 20210717
  Serious: No
  Sender: FDA-Public Use
  Company Number: US-ROCHE-2700062

PATIENT
  Sex: Male
  Weight: 71.28 kg

DRUGS (1)
  1. ESBRIET [Suspect]
     Active Substance: PIRFENIDONE
     Indication: IDIOPATHIC PULMONARY FIBROSIS
     Route: 048
     Dates: start: 20200731

REACTIONS (3)
  - Photosensitivity reaction [Recovered/Resolved]
  - Solar dermatitis [Recovered/Resolved]
  - Sunburn [Unknown]
